FAERS Safety Report 6509862-5 (Version None)
Quarter: 2009Q4

REPORT INFORMATION
  Report Type: 
  Country: None (occurrence: None)
  Receive Date: 20091221
  Receipt Date: 20091221
  Transmission Date: 20100525
  Serious: Yes (Life-Threatening, Hospitalization, Other)
  Sender: FDA-Public Use
  Company Number: None

PATIENT
  Age: 47 Year
  Sex: Female
  Weight: 77.1115 kg

DRUGS (1)
  1. AMBIEN [Suspect]
     Indication: INSOMNIA
     Dosage: 10 MG 1 PER NIGHT
     Dates: start: 20071001, end: 20081002

REACTIONS (15)
  - ABNORMAL BEHAVIOUR [None]
  - AMNESIA [None]
  - BRACHIAL PLEXUS INJURY [None]
  - DEAFNESS UNILATERAL [None]
  - DEFORMITY [None]
  - EAR INJURY [None]
  - FACE INJURY [None]
  - FACIAL PALSY [None]
  - FOREIGN BODY [None]
  - HEAD INJURY [None]
  - HUMERUS FRACTURE [None]
  - LACERATION [None]
  - ROAD TRAFFIC ACCIDENT [None]
  - SKIN GRAFT [None]
  - SOMNAMBULISM [None]
